FAERS Safety Report 6149311-2 (Version None)
Quarter: 2009Q2

REPORT INFORMATION
  Report Type: 
  Country: None (occurrence: None)
  Receive Date: 20090406
  Receipt Date: 20090406
  Transmission Date: 20091009
  Serious: Yes (Other)
  Sender: FDA-Public Use
  Company Number: None

PATIENT
  Sex: Female
  Weight: 58.9676 kg

DRUGS (1)
  1. SINGULAIR [Suspect]
     Indication: ASTHMA
     Dosage: 10MG AT BEDTIME PO
     Route: 048
     Dates: start: 20090327, end: 20090404

REACTIONS (7)
  - DISORIENTATION [None]
  - DIZZINESS [None]
  - FEELING ABNORMAL [None]
  - MIDDLE INSOMNIA [None]
  - NAUSEA [None]
  - PALPITATIONS [None]
  - PARANOIA [None]
